FAERS Safety Report 5788830-5 (Version None)
Quarter: 2008Q2

REPORT INFORMATION
  Report Type: 
  Country: None (occurrence: None)
  Receive Date: 20080623
  Receipt Date: 20080610
  Transmission Date: 20081010
  Serious: Yes (Hospitalization)
  Sender: FDA-Public Use
  Company Number: B0469957A

PATIENT
  Age: 32 Year
  Sex: Female

DRUGS (2)
  1. PAXIL [Suspect]
  2. BIRTH CONTROL [Concomitant]

REACTIONS (8)
  - DIARRHOEA [None]
  - ECCHYMOSIS [None]
  - EXTRAVASATION [None]
  - GENITAL HAEMORRHAGE [None]
  - MALAISE [None]
  - PYREXIA [None]
  - RASH [None]
  - SKIN LESION [None]
